FAERS Safety Report 9845422 (Version 1)
Quarter: 2014Q1

REPORT INFORMATION
  Report Type: Spontaneous
  Country: GB (occurrence: None)
  Receive Date: 20140122
  Receipt Date: 20140122
  Transmission Date: 20141002
  Serious: Yes (Hospitalization)
  Sender: FDA-Public Use
  Company Number: AUR-APL-2014-00364

PATIENT
  Age: 23 Year
  Sex: Female

DRUGS (1)
  1. NAPROXEN (NAPROXEN) [Suspect]
     Indication: BACK PAIN
     Dosage: 500 MG (250 MG, 2 IN 1 D), ORAL
     Route: 048
     Dates: start: 20131120, end: 20131123

REACTIONS (6)
  - Hypersensitivity [None]
  - Rash [None]
  - Swelling [None]
  - Swollen tongue [None]
  - Swelling face [None]
  - Eye swelling [None]
